FAERS Safety Report 8427299-9 (Version None)
Quarter: 2012Q2

REPORT INFORMATION
  Report Type: 
  Country: None (occurrence: None)
  Receive Date: 20120601
  Receipt Date: 20120522
  Transmission Date: 20120825
  Serious: Yes (Hospitalization)
  Sender: FDA-Public Use
  Company Number: 2012SP027529

PATIENT
  Age: 18 Year
  Sex: Female
  Weight: 81.6475 kg

DRUGS (1)
  1. IMPLANON [Suspect]
     Indication: CONTRACEPTION
     Dosage: 68 MG; ;SBDE
     Route: 059
     Dates: start: 20080814

REACTIONS (3)
  - MOTION SICKNESS [None]
  - KIDNEY INFECTION [None]
  - NAUSEA [None]
